FAERS Safety Report 16964314 (Version 1)
Quarter: 2019Q4

REPORT INFORMATION
  Report Type: Spontaneous
  Country: US (occurrence: US)
  Receive Date: 20190909
  Receipt Date: 20190909
  Transmission Date: 20200122
  Serious: Yes (Hospitalization)
  Sender: FDA-Public Use
  Company Number: None

PATIENT
  Age: 78 Year
  Sex: Male

DRUGS (1)
  1. VITRAKVI [Suspect]
     Active Substance: LAROTRECTINIB
     Indication: THYROID CANCER
     Route: 048
     Dates: start: 201905

REACTIONS (4)
  - Chest pain [None]
  - Dizziness [None]
  - Diarrhoea [None]
  - Cardiac stress test abnormal [None]

NARRATIVE: CASE EVENT DATE: 20190616
